FAERS Safety Report 24834673 (Version 1)
Quarter: 2025Q1

REPORT INFORMATION
  Report Type: Spontaneous
  Country: US (occurrence: None)
  Receive Date: 20250110
  Receipt Date: 20250110
  Transmission Date: 20250408
  Serious: Yes (Other)
  Sender: FDA-CTU
  Company Number: None

PATIENT
  Age: 30 Year
  Sex: Male
  Weight: 78.75 kg

DRUGS (3)
  1. ANASTROZOLE [Suspect]
     Active Substance: ANASTROZOLE
     Indication: Blood testosterone decreased
     Dates: start: 20200120, end: 20200206
  2. CLOMIPHENE [Suspect]
     Active Substance: CLOMIPHENE
  3. ANASTROZOLE [Concomitant]
     Active Substance: ANASTROZOLE

REACTIONS (4)
  - Dysphoria [None]
  - Genital hypoaesthesia [None]
  - Loss of libido [None]
  - Orgasmic sensation decreased [None]

NARRATIVE: CASE EVENT DATE: 20200120
